FAERS Safety Report 4498221-5 (Version None)
Quarter: 2004Q4

REPORT INFORMATION
  Report Type: 
  Country: None (occurrence: None)
  Receive Date: 20041110
  Receipt Date: 20041103
  Transmission Date: 20050328
  Serious: Yes (Death, Life-Threatening)
  Sender: FDA-Public Use
  Company Number: US-MERCK-0411USA00745

PATIENT
  Age: 3 Year
  Sex: Female

DRUGS (3)
  1. COSMEGEN [Suspect]
     Indication: RHABDOMYOSARCOMA
     Route: 042
  2. VINCRISTINE SULFATE [Suspect]
     Indication: RHABDOMYOSARCOMA
     Route: 065
  3. CYCLOPHOSPHAMIDE [Suspect]
     Indication: RHABDOMYOSARCOMA
     Route: 065

REACTIONS (6)
  - BLOOD PRESSURE DECREASED [None]
  - CARDIAC ARREST [None]
  - DRUG EFFECT DECREASED [None]
  - FEBRILE NEUTROPENIA [None]
  - GENERAL NUTRITION DISORDER [None]
  - VENTRICULAR TACHYCARDIA [None]
